FAERS Safety Report 6246299-0 (Version None)
Quarter: 2009Q2

REPORT INFORMATION
  Report Type: 
  Country: None (occurrence: None)
  Receive Date: 20090626
  Receipt Date: 20090622
  Transmission Date: 20091009
  Serious: Yes (Other)
  Sender: FDA-Public Use
  Company Number: US-BAYER-200920330NA

PATIENT
  Age: 23 Year
  Sex: Female

DRUGS (2)
  1. MIRENA [Suspect]
     Indication: CONTRACEPTION
     Route: 015
     Dates: start: 20060101
  2. BLOOD PRESSURE MEDICATION [Concomitant]

REACTIONS (9)
  - ABDOMINAL PAIN UPPER [None]
  - AMENORRHOEA [None]
  - BLOOD PRESSURE INCREASED [None]
  - CONSTIPATION [None]
  - ECTOPIC PREGNANCY [None]
  - IUCD COMPLICATION [None]
  - PELVIC INFECTION [None]
  - POLYMENORRHOEA [None]
  - SEXUALLY TRANSMITTED DISEASE [None]
